FAERS Safety Report 6549127-9 (Version None)
Quarter: 2010Q1

REPORT INFORMATION
  Report Type: 
  Country: None (occurrence: None)
  Receive Date: 20100125
  Receipt Date: 20100115
  Transmission Date: 20100710
  Serious: Yes (Other)
  Sender: FDA-Public Use
  Company Number: US-AMGEN-QUU386034

PATIENT
  Sex: Male

DRUGS (1)
  1. ENBREL [Suspect]
     Indication: RHEUMATOID ARTHRITIS
     Route: 058
     Dates: start: 20091023

REACTIONS (11)
  - BLOOD GLUCOSE INCREASED [None]
  - DIPLOPIA [None]
  - DISTURBANCE IN ATTENTION [None]
  - EYE HAEMORRHAGE [None]
  - EYE PAIN [None]
  - HYPERHIDROSIS [None]
  - JOINT STIFFNESS [None]
  - MUSCULAR WEAKNESS [None]
  - PHOTOPSIA [None]
  - SWELLING FACE [None]
  - VITREOUS FLOATERS [None]
